FAERS Safety Report 7399858-6 (Version None)
Quarter: 2011Q2

REPORT INFORMATION
  Report Type: 
  Country: None (occurrence: None)
  Receive Date: 20110407
  Receipt Date: 20110404
  Transmission Date: 20111010
  Serious: Yes (Other)
  Sender: FDA-Public Use
  Company Number: US-PFIZER INC-2011074495

PATIENT
  Sex: Male
  Weight: 113.38 kg

DRUGS (1)
  1. CELEBREX [Suspect]
     Dosage: 400 MG, UNK
     Route: 048
     Dates: start: 20110228, end: 20110228

REACTIONS (4)
  - DRUG ADMINISTRATION ERROR [None]
  - DIARRHOEA [None]
  - HEADACHE [None]
  - CARDIAC DISCOMFORT [None]
